FAERS Safety Report 8276380-6 (Version None)
Quarter: 2012Q2

REPORT INFORMATION
  Report Type: 
  Country: None (occurrence: None)
  Receive Date: 20120412
  Receipt Date: 20120410
  Transmission Date: 20120825
  Serious: No
  Sender: FDA-Public Use
  Company Number: US-TEVA-324021USA

PATIENT
  Sex: Female

DRUGS (6)
  1. VICODIN [Concomitant]
     Indication: PAIN
  2. ESOMEPRAZOLE MAGNESIUM [Concomitant]
     Indication: HIATUS HERNIA
  3. DULOXETINE HYDROCHLORIDE [Concomitant]
  4. BACLOFEN [Concomitant]
     Dosage: 15 MILLIGRAM;
     Route: 048
  5. LEVOTHYROXINE SODIUM [Concomitant]
  6. COPAXONE [Suspect]
     Indication: MULTIPLE SCLEROSIS
     Route: 058
     Dates: start: 20100719

REACTIONS (4)
  - INJECTION SITE PAIN [None]
  - INJECTION SITE MASS [None]
  - INJECTION SITE ERYTHEMA [None]
  - INJECTION SITE HAEMATOMA [None]
